FAERS Safety Report 4426581-X (Version None)
Quarter: 2004Q3

REPORT INFORMATION
  Report Type: 
  Country: None (occurrence: None)
  Receive Date: 20040812
  Receipt Date: 20040812
  Transmission Date: 20050211
  Serious: No
  Sender: FDA-Public Use
  Company Number: None

PATIENT
  Age: 10 Year
  Sex: Male
  Weight: 47.6277 kg

DRUGS (1)
  1. ZYRTEC [Suspect]
     Indication: MULTIPLE ALLERGIES
     Dosage: 10MG ONCE/DAILY ORAL
     Route: 048
     Dates: start: 20030401, end: 20040424

REACTIONS (4)
  - AGGRESSION [None]
  - CONVULSION [None]
  - DIZZINESS [None]
  - SYNCOPE [None]
